FAERS Safety Report 7298550-6 (Version None)
Quarter: 2010Q4

REPORT INFORMATION
  Report Type: 
  Country: None (occurrence: None)
  Receive Date: 20101029
  Receipt Date: 20100503
  Transmission Date: 20110411
  Serious: Yes (Life-Threatening, Hospitalization)
  Sender: FDA-Public Use
  Company Number: 2010-1443

PATIENT
  Age: 8 Year
  Sex: Female
  Weight: 9.5 kg

DRUGS (2)
  1. INCRELEX [Suspect]
     Indication: GROWTH HORMONE DEFICIENCY
     Dosage: 120 UG/KG (2 IN 1 D),SUBCUTANEOUS ; 53 UG/KG (53 UG/KG,1 IN 1 D),SUBCUTANEOUS
     Route: 058
     Dates: start: 20070619, end: 20100326
  2. INCRELEX [Suspect]
     Indication: GROWTH HORMONE DEFICIENCY
     Dosage: 120 UG/KG (2 IN 1 D),SUBCUTANEOUS ; 53 UG/KG (53 UG/KG,1 IN 1 D),SUBCUTANEOUS
     Route: 058
     Dates: start: 20100430

REACTIONS (6)
  - CARDIAC FAILURE [None]
  - HAEMOLYTIC ANAEMIA [None]
  - INTERSTITIAL LUNG DISEASE [None]
  - LIVER DISORDER [None]
  - PULMONARY FIBROSIS [None]
  - RESPIRATORY FAILURE [None]
